FAERS Safety Report 6953961 (Version 10)
Quarter: 2014Q1

REPORT INFORMATION
  Report Type: Spontaneous
  Country: US (occurrence: US)
  Receive Date: 20041119
  Receipt Date: 20140108
  Transmission Date: 20141002
  Serious: Yes (Hospitalization)
  Sender: FDA-Public Use
  Company Number: US-BIOGENIDEC-207266

PATIENT
  Age: 61 Year
  Sex: Female

DRUGS (2)
  1. AVONEX [Suspect]
     Indication: MULTIPLE SCLEROSIS
     Route: 030
     Dates: end: 20130503
  2. TEGRETOL [Concomitant]

REACTIONS (9)
  - Ovarian cancer stage III [Recovered/Resolved]
  - Ovarian cancer metastatic [Not Recovered/Not Resolved]
  - Knee arthroplasty [Recovered/Resolved]
  - Postmenopausal haemorrhage [Recovered/Resolved]
  - Retroperitoneal haematoma [Recovered/Resolved]
  - Blood count abnormal [Unknown]
  - Injection site haemorrhage [Unknown]
  - Diabetes mellitus [Not Recovered/Not Resolved]
  - Multiple sclerosis relapse [Recovered/Resolved]
